FAERS Safety Report 18550780 (Version 2)
Quarter: 2020Q4

REPORT INFORMATION
  Report Type: Spontaneous
  Country: US (occurrence: US)
  Receive Date: 20201126
  Receipt Date: 20201215
  Transmission Date: 20210114
  Serious: Yes (Hospitalization)
  Sender: FDA-Public Use
  Company Number: US-TEVA-2020-US-1851387

PATIENT
  Age: 55 Year
  Sex: Female

DRUGS (4)
  1. LISDEXAMFETAMINE [Suspect]
     Active Substance: LISDEXAMFETAMINE
     Indication: BINGE EATING
     Dosage: FOR THE PAST 1 YEAR
     Route: 048
  2. PHENTERMINE. [Suspect]
     Active Substance: PHENTERMINE
     Indication: BINGE EATING
     Route: 048
  3. PHENTERMINE. [Suspect]
     Active Substance: PHENTERMINE
     Indication: OBESITY
  4. LISDEXAMFETAMINE [Suspect]
     Active Substance: LISDEXAMFETAMINE
     Indication: OBESITY

REACTIONS (2)
  - Off label use [Unknown]
  - Stress cardiomyopathy [Recovered/Resolved]
